FAERS Safety Report 20782904 (Version 1)
Quarter: 2022Q2

REPORT INFORMATION
  Report Type: Report from Study
  Country: UA (occurrence: UA)
  Receive Date: 20220504
  Receipt Date: 20220504
  Transmission Date: 20220721
  Serious: Yes (Hospitalization)
  Sender: FDA-Public Use
  Company Number: UA-ABBVIE-17P-269-2018939-00

PATIENT
  Age: 35 Year
  Sex: Female
  Weight: 40.5 kg

DRUGS (11)
  1. PLACEBO [Suspect]
     Active Substance: UNSPECIFIED INGREDIENT
     Indication: Rheumatoid arthritis
     Route: 065
     Dates: start: 20161008, end: 20170213
  2. UPADACITINIB [Suspect]
     Active Substance: UPADACITINIB
     Indication: Rheumatoid arthritis
     Route: 048
     Dates: start: 20170214, end: 20170623
  3. UPADACITINIB [Suspect]
     Active Substance: UPADACITINIB
     Route: 048
     Dates: start: 20170722
  4. METHOTREXATE [Concomitant]
     Active Substance: METHOTREXATE
     Indication: Rheumatoid arthritis
     Route: 048
     Dates: start: 20160409, end: 20160610
  5. METHOTREXATE [Concomitant]
     Active Substance: METHOTREXATE
     Route: 048
     Dates: start: 20160730, end: 20160824
  6. METHOTREXATE [Concomitant]
     Active Substance: METHOTREXATE
     Dosage: RA. DOSE REDUCED DUE TO MTX INTOLERANCE
     Route: 048
     Dates: start: 20160825, end: 20170623
  7. METHOTREXATE [Concomitant]
     Active Substance: METHOTREXATE
     Route: 048
     Dates: start: 20160611, end: 20160729
  8. FOLIC ACID [Concomitant]
     Active Substance: FOLIC ACID
     Indication: Vitamin supplementation
     Route: 048
     Dates: start: 20160409, end: 20170623
  9. METHYLPREDNISOLONE [Concomitant]
     Active Substance: METHYLPREDNISOLONE
     Indication: Rheumatoid arthritis
     Dosage: RA. DOSE WAS TAPERED GRADUALLY FROM 12 TO 4 MG DAILY.
     Route: 048
     Dates: start: 20160305, end: 20160709
  10. METHYLPREDNISOLONE [Concomitant]
     Active Substance: METHYLPREDNISOLONE
     Route: 048
     Dates: start: 20160710
  11. ETHINYLESTRADIOL+DROSPIRENON [Concomitant]
     Indication: Contraception
     Dosage: 0.02/3 MG
     Route: 048
     Dates: start: 2015

REACTIONS (1)
  - Pneumonia [Recovered/Resolved]

NARRATIVE: CASE EVENT DATE: 20170623
